FAERS Safety Report 22650784 (Version 1)
Quarter: 2023Q2

REPORT INFORMATION
  Report Type: Spontaneous
  Country: CZ (occurrence: CZ)
  Receive Date: 20230628
  Receipt Date: 20230628
  Transmission Date: 20230722
  Serious: Yes (Other)
  Sender: FDA-Public Use
  Company Number: CZ-SUN PHARMACEUTICAL INDUSTRIES LTD-2023RR-396934

PATIENT
  Age: 35 Year
  Sex: Female

DRUGS (6)
  1. DOXORUBICIN [Suspect]
     Active Substance: DOXORUBICIN
     Indication: Neoplasm
     Dosage: UNK
     Route: 065
  2. PACLITAXEL [Suspect]
     Active Substance: PACLITAXEL
     Indication: Neoplasm
     Dosage: UNK
     Route: 065
  3. DOCETAXEL [Suspect]
     Active Substance: DOCETAXEL
     Indication: Neoplasm
     Route: 065
  4. CYCLOPHOSPHAMIDE [Suspect]
     Active Substance: CYCLOPHOSPHAMIDE
     Indication: Neoplasm
     Dosage: UNK
     Route: 065
  5. PERTUZUMAB [Suspect]
     Active Substance: PERTUZUMAB
     Indication: Neoplasm
     Dosage: UNK
     Route: 065
  6. TRASTUZUMAB [Suspect]
     Active Substance: TRASTUZUMAB
     Indication: Neoplasm
     Dosage: UNK
     Route: 065

REACTIONS (4)
  - Disease recurrence [Unknown]
  - Drug intolerance [Unknown]
  - Paronychia [Unknown]
  - Stomatitis [Unknown]
